FAERS Safety Report 12925047 (Version 3)
Quarter: 2016Q4

REPORT INFORMATION
  Report Type: Report from Study
  Country: None (occurrence: ES)
  Receive Date: 20161108
  Receipt Date: 20161123
  Transmission Date: 20170207
  Serious: Yes (Death, Hospitalization, Other)
  Sender: FDA-Public Use
  Company Number: ES-ABBVIE-16P-144-1766390-00

PATIENT
  Age: 69 Year
  Sex: Female

DRUGS (2)
  1. DUODOPA [Suspect]
     Active Substance: CARBIDOPA\LEVODOPA
     Indication: PARKINSON^S DISEASE
     Route: 050
     Dates: start: 201304
  2. ADIRO [Concomitant]
     Active Substance: ASPIRIN
     Indication: PRODUCT USED FOR UNKNOWN INDICATION

REACTIONS (17)
  - Cardiac failure congestive [Fatal]
  - Anxiety [Unknown]
  - Stoma site extravasation [Unknown]
  - Pyrexia [Fatal]
  - Decreased appetite [Unknown]
  - Multiple organ dysfunction syndrome [Fatal]
  - Hallucination [Recovered/Resolved]
  - Oxygen saturation decreased [Fatal]
  - General physical health deterioration [Fatal]
  - Seizure [Recovered/Resolved]
  - Nervousness [Unknown]
  - Aggression [Recovered/Resolved]
  - Asthenia [Unknown]
  - Oedema peripheral [Unknown]
  - Infection [Fatal]
  - Renal failure [Fatal]
  - Unintentional medical device removal [Unknown]

NARRATIVE: CASE EVENT DATE: 2016
